FAERS Safety Report 8479162-5 (Version None)
Quarter: 2012Q2

REPORT INFORMATION
  Report Type: 
  Country: None (occurrence: None)
  Receive Date: 20120629
  Receipt Date: 20120625
  Transmission Date: 20120825
  Serious: Yes (Other)
  Sender: FDA-Public Use
  Company Number: JP-BAYER-2012-061609

PATIENT
  Age: 70 Year
  Sex: Male

DRUGS (4)
  1. WARFARIN POTASSIUM [Interacting]
     Dosage: UNK
     Route: 048
     Dates: start: 19951001
  2. AMOXICILLIN [Interacting]
     Indication: ENDOCARDITIS PROPHYLAXIS
     Dosage: UNK
     Route: 048
     Dates: start: 20111101
  3. ASPIRIN [Suspect]
     Dosage: UNK
     Route: 048
     Dates: start: 19951001, end: 20110101
  4. LOXOPROFEN SODIUM [Interacting]
     Indication: ANALGESIC THERAPY
     Dosage: UNK
     Route: 048
     Dates: start: 20110101

REACTIONS (2)
  - INTERNATIONAL NORMALISED RATIO INCREASED [None]
  - POST PROCEDURAL HAEMORRHAGE [None]
